FAERS Safety Report 5810898-8 (Version None)
Quarter: 2008Q3

REPORT INFORMATION
  Report Type: 
  Country: None (occurrence: None)
  Receive Date: 20080716
  Receipt Date: 20080703
  Transmission Date: 20090109
  Serious: Yes (Hospitalization, Other)
  Sender: FDA-Public Use
  Company Number: PHHY2008BR13166

PATIENT
  Age: 60 Year
  Sex: Female

DRUGS (4)
  1. DESERILA [Suspect]
     Indication: CLUSTER HEADACHE
     Dosage: 1 TABLET EVERY 12 HOURS
     Route: 048
     Dates: start: 19930101
  2. ESTRADIOL [Concomitant]
     Indication: HORMONE REPLACEMENT THERAPY
     Dosage: 2 MG, QD
     Route: 048
  3. AERODIOL [Concomitant]
     Indication: HORMONE REPLACEMENT THERAPY
     Dosage: ONCE DAILY
  4. TRIBITANOL [Concomitant]
     Dosage: 25 MG 2 TABLETS DAILY
     Dates: start: 19930101

REACTIONS (7)
  - CEREBROVASCULAR ACCIDENT [None]
  - DEPRESSION [None]
  - EPISTAXIS [None]
  - HEADACHE [None]
  - HEMIPLEGIA [None]
  - SPEECH DISORDER [None]
  - SYNCOPE [None]
